FAERS Safety Report 23096241 (Version 1)
Quarter: 2023Q4

REPORT INFORMATION
  Report Type: Spontaneous
  Country: US (occurrence: US)
  Receive Date: 20231023
  Receipt Date: 20231023
  Transmission Date: 20240110
  Serious: Yes (Hospitalization)
  Sender: FDA-Public Use
  Company Number: US-MYLANLABS-2023M1108851

PATIENT
  Age: 81 Year
  Sex: Female

DRUGS (6)
  1. LEVETIRACETAM [Suspect]
     Active Substance: LEVETIRACETAM
     Indication: Neurotoxicity
     Dosage: UNK, RECEIVED LOADING DOSE
     Route: 065
  2. LACOSAMIDE [Suspect]
     Active Substance: LACOSAMIDE
     Indication: Neurotoxicity
     Dosage: UNK, RECEIVED LOADING DOSE
     Route: 065
  3. GENTAMICIN [Concomitant]
     Active Substance: GENTAMICIN
     Indication: Citrobacter infection
     Dosage: UNK
     Route: 033
  4. GENTAMICIN [Concomitant]
     Active Substance: GENTAMICIN
     Indication: Peritonitis
  5. PIPERACILLIN AND TAZOBACTAM [Concomitant]
     Active Substance: PIPERACILLIN SODIUM\TAZOBACTAM SODIUM
     Indication: Citrobacter infection
     Dosage: UNK
     Route: 042
  6. PIPERACILLIN AND TAZOBACTAM [Concomitant]
     Active Substance: PIPERACILLIN SODIUM\TAZOBACTAM SODIUM
     Indication: Peritonitis

REACTIONS (1)
  - Drug ineffective [Unknown]
